FAERS Safety Report 17530671 (Version 4)
Quarter: 2020Q2

REPORT INFORMATION
  Report Type: Spontaneous
  Country: MX (occurrence: MX)
  Receive Date: 20200312
  Receipt Date: 20200430
  Transmission Date: 20200713
  Serious: Yes (Disabling, Other)
  Sender: FDA-Public Use
  Company Number: NVSC2020MX068784

PATIENT
  Age: 51 Year
  Sex: Male
  Weight: 96 kg

DRUGS (5)
  1. FENIRAMINA [Concomitant]
     Indication: EYE LUBRICATION THERAPY
     Dosage: 3 MG (A DROP IN EACH EYE, 6 OR 8 TIMES A DAY)
     Route: 047
  2. NAFAZOLINA [Concomitant]
     Indication: EYE LUBRICATION THERAPY
     Dosage: 3 MG (A DROP IN EACH EYE, 6 OR 8 TIMES DAILY)
     Route: 047
  3. GALVUS MET [Suspect]
     Active Substance: METFORMIN HYDROCHLORIDE\VILDAGLIPTIN
     Indication: DIABETES MELLITUS
     Dosage: 1 DF, BID (2 YEARS AGO)
     Route: 048
     Dates: start: 201812
  4. GALVUS MET [Suspect]
     Active Substance: METFORMIN HYDROCHLORIDE\VILDAGLIPTIN
     Dosage: 1 DF, TID
     Route: 048
  5. INSULIN [Concomitant]
     Active Substance: INSULIN NOS
     Indication: DIABETES MELLITUS
     Dosage: 70 U, QD (30U IN MORNING, 20U AFTERNOON AND 20 U IN NIGHT)
     Route: 058

REACTIONS (7)
  - Blood glucose increased [Unknown]
  - Viral infection [Recovered/Resolved]
  - Facial paralysis [Recovering/Resolving]
  - Oral discomfort [Recovering/Resolving]
  - Wrong technique in product usage process [Unknown]
  - Incorrect dose administered [Unknown]
  - Eye disorder [Recovering/Resolving]

NARRATIVE: CASE EVENT DATE: 20200210
